FAERS Safety Report 4703804-0 (Version None)
Quarter: 2005Q2

REPORT INFORMATION
  Report Type: 
  Country: None (occurrence: None)
  Receive Date: 20050629
  Receipt Date: 20050629
  Transmission Date: 20051028
  Serious: Yes (Other)
  Sender: FDA-Public Use
  Company Number: None

PATIENT
  Sex: Female
  Weight: 63.5036 kg

DRUGS (1)
  1. ZOLOFT [Suspect]
     Indication: DEPRESSION
     Dosage: ONE TAB  PER DAY  ORAL
     Route: 048
     Dates: start: 20010929, end: 20050529

REACTIONS (4)
  - ANXIETY [None]
  - CONFUSIONAL STATE [None]
  - INSOMNIA [None]
  - PARAESTHESIA [None]
